FAERS Safety Report 5929472-8 (Version None)
Quarter: 2008Q3

REPORT INFORMATION
  Report Type: 
  Country: None (occurrence: None)
  Receive Date: 20080930
  Receipt Date: 20070809
  Transmission Date: 20090109
  Serious: Yes (Other)
  Sender: FDA-Public Use
  Company Number: 2007-BP-19074RO

PATIENT
  Age: 24 Year
  Sex: Female

DRUGS (5)
  1. METHOTREXATE [Suspect]
     Indication: RHEUMATOID ARTHRITIS
     Dosage: 4 TABLETS (10 MG) WEEKLY (2.5 MG,1 IN 1 WK), PO
     Route: 048
     Dates: start: 20070709, end: 20070730
  2. FOLIC ACID [Concomitant]
  3. SOMA (CARISOPRODOL) (NR) [Concomitant]
  4. PERCOCET (OXYCOCET) (NR) [Concomitant]
  5. PREDNISONE (PREDNISONE) (TA) [Concomitant]

REACTIONS (1)
  - ABDOMINAL PAIN [None]
